FAERS Safety Report 6731272-6 (Version None)
Quarter: 2010Q2

REPORT INFORMATION
  Report Type: 
  Country: None (occurrence: None)
  Receive Date: 20100517
  Receipt Date: 20100517
  Transmission Date: 20101027
  Serious: Yes (Other)
  Sender: FDA-Public Use
  Company Number: None

PATIENT
  Age: 30 Year
  Sex: Female
  Weight: 72.5755 kg

DRUGS (1)
  1. ALLI (ORLISTAT) [Suspect]
     Dosage: 1 CAPSULES PER FATTY MEAL 2 PER DAY PO
     Route: 048
     Dates: start: 20090310, end: 20100515

REACTIONS (4)
  - CRYING [None]
  - DEPRESSION [None]
  - SOCIAL AVOIDANT BEHAVIOUR [None]
  - SUICIDE ATTEMPT [None]
